FAERS Safety Report 9405219 (Version 1)
Quarter: 2013Q3

REPORT INFORMATION
  Report Type: Spontaneous
  Country: US (occurrence: US)
  Receive Date: 20130717
  Receipt Date: 20130717
  Transmission Date: 20140515
  Serious: Yes (Hospitalization)
  Sender: FDA-Public Use
  Company Number: US-ELI_LILLY_AND_COMPANY-US201307004479

PATIENT
  Sex: Female

DRUGS (6)
  1. HUMULIN NPH [Suspect]
     Indication: TYPE 2 DIABETES MELLITUS
     Dosage: UNK UNK, UNKNOWN
     Dates: end: 201207
  2. HUMALOG LISPRO [Suspect]
     Indication: TYPE 2 DIABETES MELLITUS
     Dosage: 3 U, PRN
     Dates: start: 201307
  3. HUMALOG LISPRO [Suspect]
     Dosage: 1 U, PRN
     Dates: start: 201307
  4. LANTUS [Concomitant]
     Dosage: 10 U, EACH EVENING
  5. HYDROCHLOROTHIAZIDE [Concomitant]
     Dosage: UNK, UNKNOWN
  6. ECOTRIN [Concomitant]
     Dosage: 320 MG, UNKNOWN

REACTIONS (4)
  - Lower limb fracture [Unknown]
  - Nausea [Unknown]
  - Hypoaesthesia [Recovering/Resolving]
  - Nausea [Recovering/Resolving]
